FAERS Safety Report 18133084 (Version 2)
Quarter: 2020Q3

REPORT INFORMATION
  Report Type: Spontaneous
  Country: JP (occurrence: JP)
  Receive Date: 20200811
  Receipt Date: 20200820
  Transmission Date: 20201103
  Serious: Yes (Life-Threatening, Hospitalization, Other)
  Sender: FDA-Public Use
  Company Number: JP-MACLEODS PHARMACEUTICALS US LTD-MAC2020027594

PATIENT

DRUGS (5)
  1. GLIMEPIRIDE. [Suspect]
     Active Substance: GLIMEPIRIDE
     Indication: SUICIDE ATTEMPT
     Dosage: 7 DOSAGE FORM, SINGLE
     Route: 065
  2. DAPAGLIFLOZIN. [Suspect]
     Active Substance: DAPAGLIFLOZIN
     Indication: SUICIDE ATTEMPT
     Dosage: 5 DOSAGE FORM, SINGLE
     Route: 065
  3. METFORMIN [Suspect]
     Active Substance: METFORMIN HYDROCHLORIDE
     Indication: SUICIDE ATTEMPT
     Dosage: 16000 MILLIGRAM, SINGLE, 64 TABLETS OF METFORMIN 250 MG
     Route: 065
  4. ATORVASTATIN 10 MG TABLETS [Suspect]
     Active Substance: ATORVASTATIN
     Indication: SUICIDE ATTEMPT
     Dosage: 10 MILLIGRAM, SINGLE
     Route: 065
  5. VILDAGLIPTIN 50 MG TABLETS [Suspect]
     Active Substance: VILDAGLIPTIN
     Indication: SUICIDE ATTEMPT
     Dosage: 1300 MILLIGRAM, SINGLE, 26 TABLETS OF VILDAGLIPTIN 50 MG
     Route: 065

REACTIONS (17)
  - Compartment syndrome [Recovered/Resolved]
  - Bradypnoea [Recovered/Resolved]
  - Acute kidney injury [Recovered/Resolved]
  - Paralysis [Recovered/Resolved]
  - Unresponsive to stimuli [Recovered/Resolved]
  - Intentional overdose [Recovered/Resolved]
  - Septic shock [Recovered/Resolved]
  - Hypoglycaemia [Recovered/Resolved]
  - Capillary leak syndrome [Recovered/Resolved]
  - Muscle contracture [Recovered/Resolved]
  - Disseminated intravascular coagulation [Recovered/Resolved]
  - Adrenal insufficiency [Recovered/Resolved]
  - Rhabdomyolysis [Recovered/Resolved]
  - Pneumonia aspiration [Recovered/Resolved]
  - Lactic acidosis [Recovered/Resolved]
  - Stroke volume [Recovered/Resolved]
  - Hypotension [Recovered/Resolved]
